FAERS Safety Report 10763352 (Version 1)
Quarter: 2015Q1

REPORT INFORMATION
  Report Type: Spontaneous
  Country: FR (occurrence: FR)
  Receive Date: 20150204
  Receipt Date: 20150204
  Transmission Date: 20150721
  Serious: Yes (Hospitalization)
  Sender: FDA-Public Use
  Company Number: FR-PFIZER INC-2015038163

PATIENT
  Age: 33 Year
  Sex: Male

DRUGS (7)
  1. DIAMICRON 60 [Concomitant]
     Dosage: UNK
  2. APROVEL 150 [Concomitant]
     Dosage: UNK
  3. SOMAVERT [Suspect]
     Active Substance: PEGVISOMANT
     Indication: ACROMEGALY
     Dosage: 10 MG, DAILY
     Route: 058
     Dates: start: 201207, end: 201301
  4. SOMATULINE LP [Concomitant]
     Active Substance: LANREOTIDE ACETATE
     Dosage: 120 MG, MONTHLY (EVERY 4 WEEKS )
     Dates: start: 201104, end: 201306
  5. SOMATULINE LP [Concomitant]
     Active Substance: LANREOTIDE ACETATE
     Indication: ACROMEGALY
     Dosage: 90 MG, MONTHLY (EVERY 4 WEEKS )
     Dates: start: 201010, end: 201104
  6. SOMAVERT [Suspect]
     Active Substance: PEGVISOMANT
     Dosage: 20 MG, DAILY
     Route: 058
     Dates: start: 201301, end: 201306
  7. SOMAVERT [Suspect]
     Active Substance: PEGVISOMANT
     Dosage: 20 MG, UNK
     Route: 058
     Dates: start: 20140214, end: 20141006

REACTIONS (1)
  - Pancreatitis acute [Recovered/Resolved]

NARRATIVE: CASE EVENT DATE: 201306
